FAERS Safety Report 6268513-8 (Version None)
Quarter: 2009Q3

REPORT INFORMATION
  Report Type: 
  Country: None (occurrence: None)
  Receive Date: 20090709
  Receipt Date: 20090403
  Transmission Date: 20100115
  Serious: Yes (Hospitalization)
  Sender: FDA-Public Use
  Company Number: US-2009-00107

PATIENT
  Age: 59 Year
  Sex: Male
  Weight: 81.1939 kg

DRUGS (1)
  1. CEFDINIR [Suspect]
     Dosage: 300MG TWICE DAILY, ORAL
     Route: 048
     Dates: start: 20090313, end: 20090320

REACTIONS (4)
  - ARTHRALGIA [None]
  - JOINT SWELLING [None]
  - RASH GENERALISED [None]
  - URTICARIA [None]
